FAERS Safety Report 22361969 (Version 1)
Quarter: 2023Q2

REPORT INFORMATION
  Report Type: Spontaneous
  Country: IT (occurrence: IT)
  Receive Date: 20230524
  Receipt Date: 20230524
  Transmission Date: 20230721
  Serious: Yes (Life-Threatening)
  Sender: FDA-Public Use
  Company Number: IT-002147023-NVSC2023IT118567

PATIENT
  Age: 2 Year
  Sex: Female

DRUGS (2)
  1. ALBUTEROL [Suspect]
     Active Substance: ALBUTEROL
     Indication: Asthma
     Dosage: 100 UG BY PMDI (PRESSURIZED METERED DOSE INHALER) WITH SPACER
  2. FLUTICASONE [Concomitant]
     Active Substance: FLUTICASONE
     Indication: Asthma
     Dosage: 100 UG, BID (LONG-TERM TREATMENT)
     Route: 065

REACTIONS (2)
  - Supraventricular tachycardia [Recovering/Resolving]
  - Product use issue [Unknown]
